FAERS Safety Report 19948276 (Version 1)
Quarter: 2021Q4

REPORT INFORMATION
  Report Type: Report from Study
  Country: CO (occurrence: CO)
  Receive Date: 20211013
  Receipt Date: 20211013
  Transmission Date: 20220303
  Serious: Yes (Other)
  Sender: FDA-Public Use
  Company Number: CO-JNJFOC-20211016221

PATIENT
  Age: 56 Year
  Sex: Female
  Weight: 81 kg

DRUGS (3)
  1. SIMPONI [Suspect]
     Active Substance: GOLIMUMAB
     Indication: Rheumatoid arthritis
     Route: 058
     Dates: start: 20210729
  2. CEPHALEXIN [Concomitant]
     Active Substance: CEPHALEXIN
  3. CLINDAMYCIN [Concomitant]
     Active Substance: CLINDAMYCIN

REACTIONS (3)
  - Cellulitis [Recovering/Resolving]
  - Arthropod bite [Recovering/Resolving]
  - Arthralgia [Unknown]

NARRATIVE: CASE EVENT DATE: 20210101
